FAERS Safety Report 7727935 (Version 6)
Quarter: 2016Q3

REPORT INFORMATION
  Report Type: Spontaneous
  Country: JP (occurrence: JP)
  Receive Date: 20101222
  Receipt Date: 20160905
  Transmission Date: 20161109
  Serious: Yes (Hospitalization)
  Sender: FDA-Public Use
  Company Number: JP-ROCHE-749088

PATIENT
  Age: 50 Year
  Sex: Female
  Weight: 52 kg

DRUGS (24)
  1. NABOAL [Concomitant]
     Active Substance: DICLOFENAC
     Indication: RHEUMATOID ARTHRITIS
     Route: 048
  2. BAKTAR [Concomitant]
     Active Substance: SULFAMETHOXAZOLE\TRIMETHOPRIM
     Indication: INFECTION PROPHYLAXIS
     Route: 048
     Dates: start: 20070329
  3. SHIN-BIOFERMIN S [Concomitant]
     Dosage: FORM: PERORAL AGENT
     Route: 048
  4. BIOFERMIN R [Concomitant]
     Active Substance: BACILLUS SUBTILIS\LACTOBACILLUS ACIDOPHILUS\STREPTOCOCCUS FAECAIS
     Route: 048
  5. PREDONINE [Concomitant]
     Active Substance: PREDNISOLONE\PREDNISOLONE ACETATE\PREDNISOLONE SODIUM SUCCINATE
     Indication: RHEUMATOID ARTHRITIS
     Route: 048
  6. DEPAS [Concomitant]
     Active Substance: ETIZOLAM
     Indication: INSOMNIA
     Dosage: FORM: PERORAL AGENT
     Route: 048
  7. ACTEMRA [Suspect]
     Active Substance: TOCILIZUMAB
     Indication: RHEUMATOID ARTHRITIS
     Route: 041
     Dates: start: 20101104, end: 20101202
  8. ACTEMRA [Suspect]
     Active Substance: TOCILIZUMAB
     Indication: RHEUMATOID ARTHRITIS
     Route: 041
  9. METOLATE [Suspect]
     Active Substance: METHOTREXATE
     Indication: RHEUMATOID ARTHRITIS
     Route: 048
     Dates: start: 200806, end: 20160621
  10. FOLIAMIN [Concomitant]
     Active Substance: FOLIC ACID
     Indication: RHEUMATOID ARTHRITIS
     Dosage: FORM; PERORAL AGENT
     Route: 048
  11. HALCION [Concomitant]
     Active Substance: TRIAZOLAM
     Indication: INSOMNIA
     Route: 048
  12. BIOFERMIN R [Concomitant]
     Active Substance: BACILLUS SUBTILIS\LACTOBACILLUS ACIDOPHILUS\STREPTOCOCCUS FAECAIS
     Indication: ENTEROCOLITIS
     Route: 048
     Dates: start: 200606
  13. SELBEX [Concomitant]
     Active Substance: TEPRENONE
     Route: 048
  14. VOLTAREN [Concomitant]
     Active Substance: DICLOFENAC SODIUM
     Indication: RHEUMATOID ARTHRITIS
     Dosage: ROUTE: SUPPOSITORIAE RECTALE
     Route: 054
  15. CINAL [Concomitant]
     Active Substance: ASCORBIC ACID\CALCIUM PANTOTHENATE
     Route: 048
  16. SULFAMETHOXAZOLE/TRIMETHOPRIM [Concomitant]
     Active Substance: SULFAMETHOXAZOLE\TRIMETHOPRIM
     Route: 048
  17. VOLTAREN [Concomitant]
     Active Substance: DICLOFENAC SODIUM
     Route: 054
  18. FOSAMAX [Concomitant]
     Active Substance: ALENDRONATE SODIUM
     Indication: OSTEOPOROSIS
     Dosage: DRUG: FOSAMAC (ALENDRONATE SODIUM HYDRATE)
     Route: 048
  19. SELBEX [Concomitant]
     Active Substance: TEPRENONE
     Indication: GASTRITIS
     Dosage: FORM: PERORAL AGENT
     Route: 048
  20. PARIET [Concomitant]
     Active Substance: RABEPRAZOLE SODIUM
     Indication: GASTRIC ULCER
     Dosage: DRUG: PARIET (SODIUM RABEPRAZOLE)
     Route: 048
  21. DEPAS [Concomitant]
     Active Substance: ETIZOLAM
     Route: 048
  22. HALCION [Concomitant]
     Active Substance: TRIAZOLAM
     Dosage: TAKEN FOR INSOMNIA.
     Route: 048
  23. RHEUMATREX [Suspect]
     Active Substance: METHOTREXATE SODIUM
     Indication: RHEUMATOID ARTHRITIS
     Route: 048
     Dates: start: 200606, end: 20160621
  24. PREDONINE [Concomitant]
     Active Substance: PREDNISOLONE\PREDNISOLONE ACETATE\PREDNISOLONE SODIUM SUCCINATE
     Route: 048

REACTIONS (3)
  - Subarachnoid haemorrhage [Recovering/Resolving]
  - Cerebral haemorrhage [Recovering/Resolving]
  - Hepatic function abnormal [Unknown]

NARRATIVE: CASE EVENT DATE: 20101213
